FAERS Safety Report 7761159-1 (Version None)
Quarter: 2011Q3

REPORT INFORMATION
  Report Type: 
  Country: None (occurrence: None)
  Receive Date: 20110920
  Receipt Date: 20110908
  Transmission Date: 20111222
  Serious: Yes (Hospitalization)
  Sender: FDA-Public Use
  Company Number: US-ELI_LILLY_AND_COMPANY-US201109002597

PATIENT
  Sex: Female

DRUGS (20)
  1. URSO 250 [Concomitant]
     Dosage: 250 MG, BID
  2. MORPHINE SULFATE [Concomitant]
     Dosage: 30 MG, UNK
  3. LEVOTHYROXINE SODIUM [Concomitant]
     Dosage: 100 MG, UNK
  4. METOPROLOL TARTRATE [Concomitant]
     Dosage: 25 MG, UNK
  5. MULTI-VITAMIN [Concomitant]
  6. OXYCODONE HCL [Concomitant]
     Dosage: 325 MG, UNK
  7. HYDROCORTISONE [Concomitant]
     Dosage: 20 MG, BID
  8. FOLIC ACID [Concomitant]
     Dosage: 1 MG, UNK
  9. LISINOPRIL [Concomitant]
     Indication: BLOOD PRESSURE ABNORMAL
  10. FUROSEMIDE [Concomitant]
     Dosage: 40 MG, UNK
  11. MIRAPEX [Concomitant]
     Dosage: 0.5 MG, UNK
  12. PRILOSEC [Concomitant]
  13. FORTEO [Suspect]
     Indication: OSTEOPOROSIS
     Dosage: 20 UG, QD
     Route: 065
     Dates: start: 20110601
  14. VITAMIN D [Concomitant]
  15. HYDROXYCHLOROQUINE SULFATE [Concomitant]
  16. CALCIUM CARBONATE [Concomitant]
  17. ASPIRIN [Concomitant]
  18. FORTEO [Suspect]
     Dosage: 20 UG, QD
     Route: 065
  19. HYDROMORPHONE [Concomitant]
     Dosage: 4 MG, UNK
  20. POTASSIUM [Concomitant]

REACTIONS (2)
  - RENAL FAILURE [None]
  - NAUSEA [None]
